FAERS Safety Report 15202619 (Version 2)
Quarter: 2018Q3

REPORT INFORMATION
  Report Type: Report from Study
  Country: US (occurrence: US)
  Receive Date: 20180726
  Receipt Date: 20180801
  Transmission Date: 20181010
  Serious: No
  Sender: FDA-Public Use
  Company Number: US-SA-2018SA046925

PATIENT
  Age: 26 Year
  Sex: Male
  Weight: 81 kg

DRUGS (7)
  1. GLICLAZIDE [Concomitant]
     Active Substance: GLICLAZIDE
     Indication: RHINITIS PERENNIAL
     Dosage: UNK UNK,QD
     Route: 048
     Dates: start: 201703
  2. BLINDED DUPILUMAB [Suspect]
     Active Substance: DUPILUMAB
     Indication: NASAL POLYPS
     Dosage: 2 ML,QOW
     Route: 058
     Dates: start: 20170629, end: 20171004
  3. BLINDED PLACEBO [Suspect]
     Active Substance: INVESTIGATIONAL PRODUCT
     Indication: NASAL POLYPS
     Dosage: 2 ML,QOW
     Route: 058
     Dates: start: 20170629, end: 20171004
  4. SYMBICORT [Concomitant]
     Active Substance: BUDESONIDE\FORMOTEROL FUMARATE DIHYDRATE
     Indication: ASTHMA
     Dosage: UNK UNK,QD
     Route: 055
     Dates: start: 20161209
  5. MOMETASONE FUROATE. [Suspect]
     Active Substance: MOMETASONE FUROATE
     Indication: NASAL POLYPS
     Dosage: 400 UG,QD
     Route: 045
     Dates: start: 20170531
  6. SALBUTAMOL [Concomitant]
     Active Substance: ALBUTEROL
     Indication: ASTHMA
     Dosage: UNK UNK,QD
     Route: 055
     Dates: start: 2007
  7. BLINDED NO STUDY DRUG GIVEN [Suspect]
     Active Substance: INVESTIGATIONAL PRODUCT
     Indication: NASAL POLYPS
     Dosage: 2 ML,QOW
     Route: 058
     Dates: start: 20170629, end: 20171004

REACTIONS (1)
  - Pregnancy of partner [Recovering/Resolving]

NARRATIVE: CASE EVENT DATE: 20171218
